FAERS Safety Report 8844755 (Version 1)
Quarter: 2012Q4

REPORT INFORMATION
  Report Type: 
  Country: CA (occurrence: CA)
  Receive Date: 20121017
  Receipt Date: 20121017
  Transmission Date: 20130627
  Serious: Yes (Other)
  Sender: FDA-Public Use
  Company Number: PHHY2012CA041620

PATIENT
  Sex: Female

DRUGS (2)
  1. SANDOSTATIN LAR [Suspect]
     Indication: SHORT-BOWEL SYNDROME
     Dosage: 30 mg every 4 weeks
     Route: 030
     Dates: start: 20101020
  2. SANDOSTATIN LAR [Suspect]
     Dosage: 30 mg, QMO
     Route: 030

REACTIONS (4)
  - Rectal prolapse [Unknown]
  - Dysuria [Unknown]
  - Renal impairment [Unknown]
  - Balance disorder [Unknown]
